FAERS Safety Report 17255515 (Version 1)
Quarter: 2020Q1

REPORT INFORMATION
  Report Type: Spontaneous
  Country: US (occurrence: US)
  Receive Date: 20200110
  Receipt Date: 20200110
  Transmission Date: 20200409
  Serious: Yes (Other)
  Sender: FDA-Public Use
  Company Number: US-PFIZER INC-2020005882

PATIENT
  Age: 56 Year
  Sex: Female
  Weight: 57.61 kg

DRUGS (2)
  1. SKELAXIN [Suspect]
     Active Substance: METAXALONE
     Indication: BACK DISORDER
     Dosage: 800 MG, 3X/DAY
     Route: 048
  2. SKELAXIN [Suspect]
     Active Substance: METAXALONE
     Indication: MUSCLE RELAXANT THERAPY

REACTIONS (3)
  - Drug ineffective for unapproved indication [Unknown]
  - Intervertebral disc injury [Recovered/Resolved]
  - Cervical vertebral fracture [Recovered/Resolved]
